FAERS Safety Report 7508610-X (Version None)
Quarter: 2011Q2

REPORT INFORMATION
  Report Type: 
  Country: None (occurrence: None)
  Receive Date: 20110527
  Receipt Date: 20110114
  Transmission Date: 20111010
  Serious: No
  Sender: FDA-Public Use
  Company Number: A0907750A

PATIENT
  Age: 43 Year
  Sex: Female
  Weight: 52.3 kg

DRUGS (15)
  1. PAXIL CR [Concomitant]
     Dosage: 37.5MGD PER DAY
     Route: 048
  2. CELEXA [Concomitant]
     Dosage: 40MGD PER DAY
  3. NAPROXEN (ALEVE) [Concomitant]
     Dosage: 220MG AS REQUIRED
  4. KDUR [Concomitant]
     Dosage: 20MEQ TWICE PER DAY
  5. BENTYL [Concomitant]
     Dosage: 20MG FOUR TIMES PER DAY
  6. MOBIC [Concomitant]
     Dosage: 15MG PER DAY
  7. TRAMADOL HCL [Concomitant]
     Dosage: 50MG AS REQUIRED
  8. FUROSEMIDE [Concomitant]
     Dosage: 80MG TWICE PER DAY
  9. REVATIO [Concomitant]
     Dosage: 20MG THREE TIMES PER DAY
  10. RISPERIDONE [Concomitant]
     Dosage: 2MG TWICE PER DAY
  11. FLOLAN [Suspect]
     Indication: PULMONARY ARTERIAL HYPERTENSION
     Dosage: 32NGKM UNKNOWN
     Route: 042
     Dates: start: 20090806
  12. IMODIUM [Concomitant]
     Dosage: 2MG AS REQUIRED
  13. GABAPENTIN [Concomitant]
     Dosage: 1200MG THREE TIMES PER DAY
  14. FLOLAN [Suspect]
     Indication: PULMONARY ARTERIAL HYPERTENSION
     Route: 042
     Dates: start: 20090806
  15. PRILOSEC [Concomitant]
     Dosage: 20MG TWICE PER DAY

REACTIONS (2)
  - PAIN IN JAW [None]
  - PAIN IN EXTREMITY [None]
